FAERS Safety Report 19274337 (Version 1)
Quarter: 2021Q2

REPORT INFORMATION
  Report Type: Spontaneous
  Country: US (occurrence: US)
  Receive Date: 20210519
  Receipt Date: 20210519
  Transmission Date: 20210717
  Serious: Yes (Hospitalization)
  Sender: FDA-Public Use
  Company Number: None

PATIENT
  Age: 62 Year
  Sex: Female

DRUGS (2)
  1. NP THYROID [Suspect]
     Active Substance: LEVOTHYROXINE\LIOTHYRONINE
     Indication: HYPOTHYROIDISM
  2. LEVOTHYROXINE. [Suspect]
     Active Substance: LEVOTHYROXINE

REACTIONS (7)
  - Fatigue [None]
  - Weight increased [None]
  - Headache [None]
  - Hypertension [None]
  - Temperature intolerance [None]
  - Blood cholesterol increased [None]
  - Recalled product [None]

NARRATIVE: CASE EVENT DATE: 20201001
